FAERS Safety Report 24116156 (Version 1)
Quarter: 2024Q3

REPORT INFORMATION
  Report Type: Spontaneous
  Country: US (occurrence: US)
  Receive Date: 20240722
  Receipt Date: 20240722
  Transmission Date: 20241016
  Serious: No
  Sender: AUROBINDO
  Company Number: US-AUROBINDO-AUR-APL-2024-020987

PATIENT
  Age: 88 Year
  Sex: Female

DRUGS (1)
  1. AMIODARONE HYDROCHLORIDE [Suspect]
     Active Substance: AMIODARONE HYDROCHLORIDE
     Indication: Cardiac disorder
     Dosage: 2 DOSAGE FORM, ONCE A DAY (TOOK 2 TABLETS IN 24 HOURS)
     Route: 065

REACTIONS (2)
  - Product administration error [Unknown]
  - Overdose [Unknown]
